FAERS Safety Report 17226973 (Version 1)
Quarter: 2020Q1

REPORT INFORMATION
  Report Type: Spontaneous
  Country: GB (occurrence: GB)
  Receive Date: 20200103
  Receipt Date: 20200103
  Transmission Date: 20200409
  Serious: Yes (Other)
  Sender: FDA-Public Use
  Company Number: GB-JNJFOC-20191246407

PATIENT
  Age: 62 Year
  Sex: Female

DRUGS (13)
  1. IBUPROFEN. [Suspect]
     Active Substance: IBUPROFEN
     Indication: OSTEOARTHRITIS
  2. CIPROFLOXACIN. [Suspect]
     Active Substance: CIPROFLOXACIN
     Indication: ARTHRALGIA
  3. DICLOFENAC [Suspect]
     Active Substance: DICLOFENAC
     Indication: OSTEOARTHRITIS
  4. DEXAMETHASONE. [Suspect]
     Active Substance: DEXAMETHASONE
     Indication: OSTEOARTHRITIS
     Dosage: PART OF OTC ^HERBAL^ PREPARATION
     Route: 065
  5. PARACETAMOL [Suspect]
     Active Substance: ACETAMINOPHEN
     Indication: ARTHRALGIA
  6. STEROIDS [Concomitant]
     Active Substance: UNSPECIFIED INGREDIENT
     Indication: ASTHMA
     Route: 065
  7. CIMETIDINE [Suspect]
     Active Substance: CIMETIDINE
     Indication: ARTHRALGIA
     Dosage: PART OF OTC ^HERBAL^ PREPARATION
     Route: 065
  8. IBUPROFEN. [Suspect]
     Active Substance: IBUPROFEN
     Indication: ARTHRALGIA
     Dosage: PART OF OTC ^HERBAL^ PREPARATION
     Route: 065
  9. CIPROFLOXACIN. [Suspect]
     Active Substance: CIPROFLOXACIN
     Indication: OSTEOARTHRITIS
     Dosage: PART OF OTC ^HERBAL^ PREPARATION
     Route: 065
  10. CIMETIDINE [Suspect]
     Active Substance: CIMETIDINE
     Indication: OSTEOARTHRITIS
  11. DEXAMETHASONE. [Suspect]
     Active Substance: DEXAMETHASONE
     Indication: ARTHRALGIA
  12. PARACETAMOL [Suspect]
     Active Substance: ACETAMINOPHEN
     Indication: OSTEOARTHRITIS
     Dosage: PART OF OTC ^HERBAL^ PREPARATION
     Route: 065
  13. DICLOFENAC [Suspect]
     Active Substance: DICLOFENAC
     Indication: ARTHRALGIA
     Dosage: PART OF OTC ^HERBAL^ PREPARATION
     Route: 065

REACTIONS (1)
  - Secondary adrenocortical insufficiency [Unknown]
